FAERS Safety Report 6714844-4 (Version None)
Quarter: 2010Q2

REPORT INFORMATION
  Report Type: 
  Country: None (occurrence: None)
  Receive Date: 20100507
  Receipt Date: 20100429
  Transmission Date: 20101027
  Serious: Yes (Other)
  Sender: FDA-Public Use
  Company Number: FR-WYE-G06058410

PATIENT
  Sex: Female

DRUGS (2)
  1. EFFEXOR XR [Suspect]
     Indication: DEPRESSION
     Route: 048
     Dates: end: 20100101
  2. LEXOMIL [Concomitant]
     Route: 048

REACTIONS (2)
  - HYPERTENSION [None]
  - MACULAR OEDEMA [None]
